FAERS Safety Report 23752738 (Version 1)
Quarter: 2024Q2

REPORT INFORMATION
  Report Type: Spontaneous
  Country: FR (occurrence: FR)
  Receive Date: 20240417
  Receipt Date: 20240417
  Transmission Date: 20240716
  Serious: Yes (Hospitalization)
  Sender: FDA-Public Use
  Company Number: None

PATIENT
  Age: 36 Year
  Sex: Female
  Weight: 62 kg

DRUGS (3)
  1. ISRADIPINE [Suspect]
     Active Substance: ISRADIPINE
     Indication: Connective tissue disorder
     Dosage: 2 DF, QD
     Route: 048
     Dates: start: 20240311, end: 20240311
  2. METHOTREXATE SODIUM [Suspect]
     Active Substance: METHOTREXATE SODIUM
     Indication: Connective tissue disorder
     Dosage: 12.5 MG, QD
     Route: 058
     Dates: start: 20240311, end: 20240311
  3. ACETAMINOPHEN [Suspect]
     Active Substance: ACETAMINOPHEN
     Indication: Pain
     Dosage: 3.000G QD
     Route: 048
     Dates: start: 20240311, end: 20240314

REACTIONS (2)
  - Hepatitis acute [Recovered/Resolved]
  - Renal tubular necrosis [Not Recovered/Not Resolved]

NARRATIVE: CASE EVENT DATE: 20240314
